FAERS Safety Report 5494536-2 (Version None)
Quarter: 2007Q4

REPORT INFORMATION
  Report Type: 
  Country: None (occurrence: None)
  Receive Date: 20071024
  Receipt Date: 20071011
  Transmission Date: 20080405
  Serious: Yes (Hospitalization)
  Sender: FDA-Public Use
  Company Number: US-ELI_LILLY_AND_COMPANY-US200708001680

PATIENT
  Sex: Female
  Weight: 68.027 kg

DRUGS (4)
  1. FORTEO [Suspect]
     Indication: OSTEOPOROSIS
     Dates: start: 20060901
  2. PREMPRO [Concomitant]
     Dosage: 0.45 MG/1.5 MG, UNK
  3. CALCIUM [Concomitant]
  4. PRINZIDE [Concomitant]
     Dosage: 10-12.5 UNK, UNK

REACTIONS (2)
  - CERVICAL VERTEBRAL FRACTURE [None]
  - FALL [None]
